FAERS Safety Report 4604498-5 (Version None)
Quarter: 2005Q2

REPORT INFORMATION
  Report Type: 
  Country: None (occurrence: None)
  Receive Date: 20050217
  Receipt Date: 20041118
  Transmission Date: 20051028
  Serious: No
  Sender: FDA-Public Use
  Company Number: S04-USA-07508-01

PATIENT
  Age: 87 Year
  Sex: Male

DRUGS (8)
  1. NAMENDA [Suspect]
     Indication: DEMENTIA
     Dosage: 15 MG QD PO
     Route: 048
     Dates: start: 20041017
  2. NAMENDA [Suspect]
     Indication: DEMENTIA
     Dosage: 5 MG QD PO
     Route: 048
     Dates: start: 20041003, end: 20041009
  3. NAMENDA [Suspect]
     Indication: DEMENTIA
     Dosage: 5 MG BID PO
     Route: 048
     Dates: start: 20041010, end: 20041016
  4. ARICEPT [Concomitant]
  5. TOPROL-XL [Concomitant]
  6. BEXTRA [Concomitant]
  7. CALCIUM GLUCONATE [Concomitant]
  8. VITAMINS [Concomitant]

REACTIONS (1)
  - SOMNOLENCE [None]
